FAERS Safety Report 14564474 (Version 1)
Quarter: 2018Q1

REPORT INFORMATION
  Report Type: Report from Study
  Country: US (occurrence: US)
  Receive Date: 20180222
  Receipt Date: 20180222
  Transmission Date: 20180509
  Serious: Yes (Other)
  Sender: FDA-Public Use
  Company Number: US-GILEAD-2018-0322278

PATIENT
  Age: 5 Year
  Sex: Female

DRUGS (18)
  1. AMOX                               /00249601/ [Concomitant]
  2. TAMIFLU [Concomitant]
     Active Substance: OSELTAMIVIR PHOSPHATE
  3. LEVETIRACETAM. [Concomitant]
     Active Substance: LEVETIRACETAM
  4. CELONTIN [Concomitant]
     Active Substance: METHSUXIMIDE
  5. FYCOMPA [Concomitant]
     Active Substance: PERAMPANEL
  6. BUDESONIDE. [Concomitant]
     Active Substance: BUDESONIDE
  7. ALBUTEROL                          /00139501/ [Concomitant]
     Active Substance: ALBUTEROL
  8. ONDANSETRON [Concomitant]
     Active Substance: ONDANSETRON
  9. ERGOCALCIFEROL. [Concomitant]
     Active Substance: ERGOCALCIFEROL
  10. AZTREONAM LYSINE [Suspect]
     Active Substance: AZTREONAM LYSINE
     Indication: CYSTIC FIBROSIS
     Dosage: 75 MG, UNK
     Route: 055
     Dates: start: 20171229
  11. POLYETHYLENE GLYCOL [Concomitant]
     Active Substance: POLYETHYLENE GLYCOLS
  12. CIPRO [Concomitant]
     Active Substance: CIPROFLOXACIN HYDROCHLORIDE
  13. ORGAN LYSATE NOS [Concomitant]
  14. FELBAMATE. [Concomitant]
     Active Substance: FELBAMATE
  15. SILTUSSIN                          /00048001/ [Concomitant]
  16. ONFI [Concomitant]
     Active Substance: CLOBAZAM
  17. CETIRIZINE [Concomitant]
     Active Substance: CETIRIZINE HYDROCHLORIDE
  18. GLYCOPYRROLATE                     /00196201/ [Concomitant]
     Active Substance: GLYCOPYRRONIUM

REACTIONS (3)
  - Melaena [Unknown]
  - Off label use [Not Recovered/Not Resolved]
  - Product physical consistency issue [Unknown]
